FAERS Safety Report 6893780-7 (Version None)
Quarter: 2010Q3

REPORT INFORMATION
  Report Type: 
  Country: None (occurrence: None)
  Receive Date: 20100802
  Receipt Date: 20100721
  Transmission Date: 20110219
  Serious: Yes (Hospitalization, Other)
  Sender: FDA-Public Use
  Company Number: US-BIOGENIDEC-2010BI014435

PATIENT
  Sex: Female

DRUGS (16)
  1. AVONEX [Suspect]
     Indication: MULTIPLE SCLEROSIS
     Route: 030
     Dates: start: 20010219, end: 20060102
  2. AVONEX [Suspect]
     Route: 030
     Dates: start: 20081205
  3. ORAL PILL (NOS) [Concomitant]
     Indication: DIABETES MELLITUS
  4. IMDUR [Concomitant]
  5. MORPHINE SULFATE [Concomitant]
  6. PEPCID [Concomitant]
  7. ZOCOR [Concomitant]
  8. CALCIUM [Concomitant]
  9. REQUIP [Concomitant]
  10. CITALOPRAM [Concomitant]
  11. PROTONIX [Concomitant]
  12. PLAVIX [Concomitant]
  13. NORVASC [Concomitant]
  14. LISINOPRIL [Concomitant]
  15. FLEXERIL [Concomitant]
  16. CHANTIX [Concomitant]
     Indication: EX-TOBACCO USER

REACTIONS (16)
  - CARDIAC FAILURE CONGESTIVE [None]
  - CHRONIC OBSTRUCTIVE PULMONARY DISEASE [None]
  - CORONARY ARTERY DISEASE [None]
  - CYSTITIS [None]
  - DEHYDRATION [None]
  - DIABETIC NEPHROPATHY [None]
  - ENDOTHELIAL DYSFUNCTION [None]
  - FEAR [None]
  - FEMORAL ARTERY OCCLUSION [None]
  - HYPERLIPIDAEMIA [None]
  - HYPERTENSION [None]
  - INTERMITTENT CLAUDICATION [None]
  - MENTAL STATUS CHANGES [None]
  - PERIPHERAL ARTERIAL OCCLUSIVE DISEASE [None]
  - PERIPHERAL VASCULAR DISORDER [None]
  - RENAL FAILURE CHRONIC [None]
